FAERS Safety Report 12568346 (Version 1)
Quarter: 2016Q3

REPORT INFORMATION
  Report Type: Report from Study
  Country: BR (occurrence: BR)
  Receive Date: 20160718
  Receipt Date: 20160718
  Transmission Date: 20161109
  Serious: Yes (Other)
  Sender: FDA-Public Use
  Company Number: PHHY2016BR097841

PATIENT
  Sex: Male

DRUGS (2)
  1. DIOVAN [Suspect]
     Active Substance: VALSARTAN
     Indication: PRODUCT USED FOR UNKNOWN INDICATION
     Route: 065
  2. EXELON [Suspect]
     Active Substance: RIVASTIGMINE TARTRATE
     Indication: PRODUCT USED FOR UNKNOWN INDICATION
     Dosage: 4.5 MG, UNK
     Route: 048

REACTIONS (8)
  - Malaise [Unknown]
  - Nausea [Unknown]
  - Blood pressure increased [Unknown]
  - Syncope [Unknown]
  - Abdominal pain [Unknown]
  - Drug prescribing error [Unknown]
  - Feeling cold [Unknown]
  - Vomiting [Unknown]
